FAERS Safety Report 5457244-X (Version None)
Quarter: 2007Q3

REPORT INFORMATION
  Report Type: 
  Country: None (occurrence: None)
  Receive Date: 20070918
  Receipt Date: 20070502
  Transmission Date: 20080115
  Serious: Yes (Other)
  Sender: FDA-Public Use
  Company Number: US-ASTRAZENECA-2007UW01796

PATIENT
  Sex: Male

DRUGS (13)
  1. SEROQUEL [Suspect]
     Indication: DEPRESSION
     Route: 048
     Dates: start: 19980922, end: 19990622
  2. SEROQUEL [Suspect]
     Indication: SCHIZOPHRENIA
     Route: 048
     Dates: start: 19980922, end: 19990622
  3. SEROQUEL [Suspect]
     Route: 048
     Dates: start: 19990601, end: 20020201
  4. SEROQUEL [Suspect]
     Route: 048
     Dates: start: 19990601, end: 20020201
  5. SEROQUEL [Suspect]
     Route: 048
     Dates: start: 20020204, end: 20030419
  6. SEROQUEL [Suspect]
     Route: 048
     Dates: start: 20020204, end: 20030419
  7. SEROQUEL [Suspect]
     Route: 048
     Dates: start: 20030101, end: 20031205
  8. SEROQUEL [Suspect]
     Route: 048
     Dates: start: 20030101, end: 20031205
  9. SEROQUEL [Suspect]
     Route: 048
     Dates: start: 20040101
  10. SEROQUEL [Suspect]
     Route: 048
     Dates: start: 20040101
  11. ZYPREXA [Suspect]
     Indication: DEPRESSION
     Dates: start: 20020204, end: 20031205
  12. ZYPREXA [Suspect]
     Indication: SCHIZOPHRENIA
     Dates: start: 20020204, end: 20031205
  13. RISPERDAL [Concomitant]
     Dates: start: 19950810, end: 19950830

REACTIONS (2)
  - PANCREATITIS ACUTE [None]
  - TYPE 2 DIABETES MELLITUS [None]
